FAERS Safety Report 5859214-6 (Version None)
Quarter: 2008Q3

REPORT INFORMATION
  Report Type: 
  Country: None (occurrence: None)
  Receive Date: 20080825
  Receipt Date: 20080820
  Transmission Date: 20090109
  Serious: Yes (Death, Hospitalization, Other)
  Sender: FDA-Public Use
  Company Number: 2008SP016829

PATIENT
  Age: 30 Year
  Sex: Female

DRUGS (1)
  1. TEMODAL [Suspect]
     Indication: ASTROCYTOMA
     Dosage: 350 MG/M2; QD; PO
     Route: 048
     Dates: start: 20080707, end: 20080711

REACTIONS (6)
  - CONTUSION [None]
  - CONVULSION [None]
  - GINGIVAL BLEEDING [None]
  - NEUTROPHIL COUNT DECREASED [None]
  - PLATELET COUNT DECREASED [None]
  - WHITE BLOOD CELL COUNT DECREASED [None]
